FAERS Safety Report 9052631 (Version 1)
Quarter: 2013Q1

REPORT INFORMATION
  Report Type: Report from Study
  Country: NL (occurrence: NL)
  Receive Date: 20130207
  Receipt Date: 20130207
  Transmission Date: 20140127
  Serious: Yes (Hospitalization, Other)
  Sender: FDA-Public Use
  Company Number: NL-EISAI INC-E2007-00784-CLI-NL

PATIENT
  Age: 28 None
  Sex: Male
  Weight: 63 kg

DRUGS (12)
  1. E2007 (PERAMPANEL) [Suspect]
     Indication: EPILEPSY
     Dosage: DOUBLE BLIND CONVERSION PHASE
     Route: 048
     Dates: start: 20100419, end: 20100817
  2. E2007 (PERAMPANEL) [Suspect]
     Route: 048
     Dates: start: 20100818, end: 20101014
  3. E2007 (PERAMPANEL) [Suspect]
     Route: 048
     Dates: start: 20101015, end: 20110112
  4. E2007 (PERAMPANEL) [Suspect]
     Route: 048
     Dates: start: 20110113, end: 20121115
  5. CLOBAZAM [Concomitant]
     Route: 048
     Dates: start: 20090806
  6. CARBAMAZEPINE [Concomitant]
     Route: 048
     Dates: start: 20090806
  7. LAMOTRIGINE [Concomitant]
     Route: 048
     Dates: start: 20101108, end: 20110112
  8. LAMOTRIGINE [Concomitant]
     Route: 048
     Dates: start: 20110113
  9. ASCAL [Concomitant]
     Route: 048
     Dates: start: 20110210
  10. SYMVASTATINE [Concomitant]
     Route: 048
     Dates: start: 20110127, end: 20110301
  11. PERSANTIN [Concomitant]
     Route: 048
     Dates: start: 20110204
  12. PRAVASTATINE [Concomitant]
     Route: 048
     Dates: start: 20110302

REACTIONS (2)
  - Cerebrovascular accident [Recovered/Resolved]
  - Carotid artery dissection [Not Recovered/Not Resolved]
